FAERS Safety Report 7928741-X (Version None)
Quarter: 2011Q4

REPORT INFORMATION
  Report Type: 
  Country: None (occurrence: None)
  Receive Date: 20111118
  Receipt Date: 20111111
  Transmission Date: 20120403
  Serious: Yes (Life-Threatening)
  Sender: FDA-Public Use
  Company Number: US-CELGENEUS-163-21880-11111921

PATIENT
  Sex: Male
  Weight: 76.272 kg

DRUGS (14)
  1. BENDAMUSTINE [Suspect]
     Indication: MULTIPLE MYELOMA
     Route: 065
  2. ACCUPRIL [Concomitant]
     Dosage: 30 MILLIGRAM
     Route: 065
  3. OXYCODONE HCL [Concomitant]
     Indication: PAIN
     Dosage: 5 MILLIGRAM
     Route: 065
  4. VITAMIN B-12 [Concomitant]
     Route: 065
  5. VELCADE [Concomitant]
     Indication: MULTIPLE MYELOMA
     Route: 065
  6. OXYCONTIN [Concomitant]
     Dosage: 10 MILLIGRAM
     Route: 065
  7. DEXAMETHASONE [Suspect]
     Dosage: 20 MILLIGRAM
     Route: 065
  8. REVLIMID [Suspect]
     Indication: MULTIPLE MYELOMA
     Route: 048
     Dates: start: 20090824, end: 20091220
  9. ACYCLOVIR [Concomitant]
     Dosage: 400 MILLIGRAM
     Route: 065
  10. OXYCONTIN [Concomitant]
     Dosage: 30 MILLIGRAM
     Route: 065
  11. CALCIUM [Concomitant]
     Dosage: 1500 MILLIGRAM
     Route: 048
  12. MULTI-VITAMINS [Concomitant]
     Dosage: 1
     Route: 065
  13. DEXAMETHASONE [Suspect]
     Indication: MULTIPLE MYELOMA
     Route: 065
     Dates: start: 20090824, end: 20091220
  14. LORAZEPAM [Concomitant]
     Dosage: .5 MILLIGRAM
     Route: 065

REACTIONS (1)
  - PANCREATIC CARCINOMA METASTATIC [None]
